FAERS Safety Report 6240290-6 (Version None)
Quarter: 2009Q2

REPORT INFORMATION
  Report Type: 
  Country: None (occurrence: None)
  Receive Date: 20090623
  Receipt Date: 20080603
  Transmission Date: 20091009
  Serious: No
  Sender: FDA-Public Use
  Company Number: US-ASTRAZENECA-2008UW11191

PATIENT
  Age: 5 Year
  Sex: Male
  Weight: 17.2 kg

DRUGS (2)
  1. PULMICORT RESPULES [Suspect]
     Indication: ASTHMA
     Route: 055
     Dates: start: 20080301
  2. ALBUTEROL [Concomitant]

REACTIONS (2)
  - EATING DISORDER [None]
  - WEIGHT DECREASED [None]
